FAERS Safety Report 16497577 (Version 1)
Quarter: 2019Q2

REPORT INFORMATION
  Report Type: Spontaneous
  Country: DK (occurrence: DK)
  Receive Date: 20190628
  Receipt Date: 20190628
  Transmission Date: 20190711
  Serious: Yes (Hospitalization)
  Sender: FDA-Public Use
  Company Number: DK-MYLANLABS-2019M1061140

PATIENT
  Age: 83 Year
  Sex: Male

DRUGS (7)
  1. ATORVASTATIN [Concomitant]
     Active Substance: ATORVASTATIN
     Indication: HYPERCHOLESTEROLAEMIA
     Dosage: 20 MILLIGRAM, QD
     Route: 048
  2. BRINZOLAMIDE [Concomitant]
     Active Substance: BRINZOLAMIDE
     Indication: GLAUCOMA
     Dosage: 2 DOSAGE FORM, QD
     Route: 050
     Dates: start: 20181114, end: 20190114
  3. METFORMIN [Concomitant]
     Active Substance: METFORMIN HYDROCHLORIDE
     Indication: TYPE 2 DIABETES MELLITUS
     Dosage: 1000 MILLIGRAM, QD
     Route: 048
     Dates: start: 20140827
  4. MACROGOL [Concomitant]
     Active Substance: POLYETHYLENE GLYCOLS
     Indication: CONSTIPATION
     Dosage: 3 DOSAGE FORM, QD
     Route: 048
     Dates: start: 20181211
  5. CLOZAPINE MYLAN 25 MG, TABLETTEN [Suspect]
     Active Substance: CLOZAPINE
     Indication: TREMOR
     Dosage: UNK
     Route: 048
     Dates: start: 20181204, end: 20190108
  6. COSOPT [Concomitant]
     Active Substance: DORZOLAMIDE HYDROCHLORIDE\TIMOLOL MALEATE
     Indication: GLAUCOMA
     Dosage: 2 DOSAGE FORM, QD
     Route: 050
  7. LATANOPROST. [Concomitant]
     Active Substance: LATANOPROST
     Indication: GLAUCOMA
     Dosage: 1 DOSAGE FORM, QD
     Route: 050
     Dates: start: 20170817

REACTIONS (4)
  - Atrial flutter [Unknown]
  - Fatigue [Unknown]
  - Pollakiuria [Unknown]
  - Dry mouth [Unknown]

NARRATIVE: CASE EVENT DATE: 201812
